FAERS Safety Report 25741614 (Version 1)
Quarter: 2025Q3

REPORT INFORMATION
  Report Type: Spontaneous
  Country: CN (occurrence: CN)
  Receive Date: 20250829
  Receipt Date: 20250829
  Transmission Date: 20251021
  Serious: Yes (Life-Threatening)
  Sender: BAYER HEALTHCARE PHARMACEUTICALS INC.
  Company Number: CN-BAYER-2025A114569

PATIENT
  Age: 77 Year
  Sex: Female
  Weight: 36 kg

DRUGS (4)
  1. AVELOX [Suspect]
     Active Substance: MOXIFLOXACIN HYDROCHLORIDE
     Indication: Pneumonia fungal
     Dosage: 250 ML, QD
     Route: 041
     Dates: start: 20250806, end: 20250818
  2. AMPHOTERICIN B CHOLESTERYL SULFATE [Suspect]
     Active Substance: AMPHOTERICIN B CHOLESTERYL SULFATE
     Indication: Pneumonia fungal
     Dosage: 50 MG, QD
     Route: 041
     Dates: start: 20250807, end: 20250807
  3. AMPHOTERICIN B CHOLESTERYL SULFATE [Suspect]
     Active Substance: AMPHOTERICIN B CHOLESTERYL SULFATE
     Indication: Pneumonia fungal
     Dosage: 100 MG, QD
     Route: 041
     Dates: start: 20250808, end: 20250808
  4. AMPHOTERICIN B CHOLESTERYL SULFATE [Suspect]
     Active Substance: AMPHOTERICIN B CHOLESTERYL SULFATE
     Indication: Pneumonia fungal
     Dosage: 150 MG, QD
     Route: 041
     Dates: start: 20250809, end: 20250818

REACTIONS (3)
  - Hypokalaemia [Recovering/Resolving]
  - Product use in unapproved indication [None]
  - Product prescribing issue [None]

NARRATIVE: CASE EVENT DATE: 20250806
